FAERS Safety Report 11918770 (Version 1)
Quarter: 2016Q1

REPORT INFORMATION
  Report Type: Spontaneous
  Country: US (occurrence: US)
  Receive Date: 20160115
  Receipt Date: 20160115
  Transmission Date: 20160526
  Serious: No
  Sender: FDA-Public Use
  Company Number: US-JNJFOC-20151202203

PATIENT
  Age: 73 Year
  Sex: Female
  Weight: 72.58 kg

DRUGS (15)
  1. PREDNISONE. [Concomitant]
     Active Substance: PREDNISONE
     Indication: PERIPHERAL SWELLING
     Route: 065
     Dates: start: 201409
  2. ESTRADIOL. [Concomitant]
     Active Substance: ESTRADIOL
     Indication: BLADDER DISORDER
     Route: 065
     Dates: start: 200909
  3. GLUCOSAMINE [Concomitant]
     Active Substance: GLUCOSAMINE
     Indication: ARTHROPATHY
     Route: 065
  4. LEXAPRO [Concomitant]
     Active Substance: ESCITALOPRAM OXALATE
     Indication: MIGRAINE
     Route: 065
     Dates: start: 200805
  5. ESTRACE [Concomitant]
     Active Substance: ESTRADIOL
     Indication: BLADDER DISORDER
     Dosage: DOSE: 1/4 OF APPLICATOR; STRENGTH: 0.01 %
     Route: 065
     Dates: start: 200909
  6. CALCIUM + VIT D [Concomitant]
     Active Substance: CALCIUM\VITAMIN D
     Indication: OSTEOPENIA
     Dosage: 1200 MG/1000 MG
     Route: 065
     Dates: start: 201505
  7. REMICADE [Suspect]
     Active Substance: INFLIXIMAB
     Indication: RHEUMATOID ARTHRITIS
     Dosage: DOSE WAS REPORTED AS 7.5 (UNSPECIFIED UNITS).
     Route: 042
     Dates: start: 201507
  8. GABAPENTIN. [Concomitant]
     Active Substance: GABAPENTIN
     Indication: CONVULSION PROPHYLAXIS
     Route: 065
     Dates: start: 2008
  9. LEXAPRO [Concomitant]
     Active Substance: ESCITALOPRAM OXALATE
     Indication: DEPRESSION
     Route: 065
     Dates: start: 200805
  10. PREDNISONE. [Concomitant]
     Active Substance: PREDNISONE
     Indication: PAIN IN EXTREMITY
     Route: 065
     Dates: start: 201409
  11. PROTONIX [Concomitant]
     Active Substance: PANTOPRAZOLE SODIUM
     Indication: GASTRITIS BACTERIAL
     Route: 065
     Dates: start: 2014
  12. METHOTREXATE [Concomitant]
     Active Substance: METHOTREXATE
     Indication: RHEUMATOID ARTHRITIS
     Dosage: STRENGTH 2.5 MG
     Route: 065
     Dates: start: 2015
  13. FOLIC ACID. [Concomitant]
     Active Substance: FOLIC ACID
     Dosage: ALONG WITH METHOTREXATE
     Route: 065
     Dates: start: 2015
  14. LORATADINE. [Concomitant]
     Active Substance: LORATADINE
     Route: 065
     Dates: start: 201303
  15. GABAPENTIN. [Concomitant]
     Active Substance: GABAPENTIN
     Indication: BRAIN NEOPLASM
     Route: 065
     Dates: start: 2008

REACTIONS (3)
  - Rhinorrhoea [Recovered/Resolved]
  - Oropharyngeal pain [Recovered/Resolved]
  - Sinusitis [Recovered/Resolved]

NARRATIVE: CASE EVENT DATE: 201511
